FAERS Safety Report 15335878 (Version 2)
Quarter: 2018Q4

REPORT INFORMATION
  Report Type: Spontaneous
  Country: CO (occurrence: CO)
  Receive Date: 20180830
  Receipt Date: 20181023
  Transmission Date: 20190204
  Serious: Yes (Other)
  Sender: FDA-Public Use
  Company Number: CO-BAYER-2018-158580

PATIENT
  Age: 32 Year
  Sex: Female

DRUGS (1)
  1. MIRENA [Suspect]
     Active Substance: LEVONORGESTREL
     Dosage: 20 MCG/24HR, CONT
     Route: 015
     Dates: start: 201707

REACTIONS (8)
  - Thrombosis [None]
  - Skin discolouration [None]
  - Weight increased [None]
  - Acne [None]
  - Palpitations [None]
  - Heart rate decreased [None]
  - Abdominal pain [None]
  - Migraine with aura [None]

NARRATIVE: CASE EVENT DATE: 201710
